FAERS Safety Report 9123034 (Version 1)
Quarter: 2013Q1

REPORT INFORMATION
  Report Type: Spontaneous
  Country: US (occurrence: US)
  Receive Date: 20130227
  Receipt Date: 20130227
  Transmission Date: 20140127
  Serious: Yes (Other)
  Sender: FDA-Public Use
  Company Number: US-JNJFOC-20130208652

PATIENT
  Age: 27 None
  Sex: Female
  Weight: 54.43 kg

DRUGS (9)
  1. DURAGESIC [Suspect]
     Indication: RHEUMATOID ARTHRITIS
     Route: 062
     Dates: start: 20130201, end: 20130206
  2. DURAGESIC [Suspect]
     Indication: SCOLIOSIS
     Route: 062
     Dates: start: 20130201, end: 20130206
  3. DURAGESIC [Suspect]
     Indication: SPINAL FRACTURE
     Route: 062
     Dates: start: 20130201, end: 20130206
  4. OXYCODONE [Concomitant]
     Indication: PAIN
     Dosage: 30 MG TABLET 1-2 AS NEEDED EVERY FOUR HOURS
     Route: 048
  5. HYDROCODONE [Concomitant]
     Indication: PAIN
     Dosage: 10-325 MG TABLET MAXIMUM 8 PER DAY
     Route: 048
  6. TIZANIDINE [Concomitant]
     Indication: PAIN
     Dosage: 4 MG TABLET MAXIMUM 4 PER DAY
     Route: 048
  7. XANAX [Concomitant]
     Indication: ANXIETY
     Dosage: 4 MG TABLET MAXIMUM 4 PER DAY
     Route: 048
  8. VOLTAREN [Concomitant]
     Indication: INFLAMMATION
     Route: 061
  9. UNKNOWN MEDICATION [Concomitant]
     Indication: INFLAMMATION
     Route: 061

REACTIONS (6)
  - Convulsion [Recovered/Resolved]
  - Incorrect drug administration duration [Recovered/Resolved]
  - Euphoric mood [Unknown]
  - Drug ineffective [Not Recovered/Not Resolved]
  - Expired drug administered [Recovered/Resolved]
  - Drug dispensing error [Not Recovered/Not Resolved]
